FAERS Safety Report 25860184 (Version 1)
Quarter: 2025Q3

REPORT INFORMATION
  Report Type: Report from Study
  Country: US (occurrence: US)
  Receive Date: 20250929
  Receipt Date: 20250929
  Transmission Date: 20251021
  Serious: Yes (Hospitalization)
  Sender: GILEAD
  Company Number: US-GILEAD-2025-0730006

PATIENT
  Age: 12 Year
  Sex: Male

DRUGS (16)
  1. AZTREONAM LYSINE [Suspect]
     Active Substance: AZTREONAM LYSINE
     Indication: Respiratory tract malformation
     Dosage: 75 MG, TID (INHALE 1 VIAL VIA ALTERA NEBULIZER THREE TIMES DAILY FOR 28 DAYS ON, 28 DAYS OFF )
     Route: 055
     Dates: start: 20231216
  2. FLUCONAZOLE [Concomitant]
     Active Substance: FLUCONAZOLE
  3. PREDNISOLONE [Concomitant]
     Active Substance: PREDNISOLONE
  4. CETIRIZINE [Concomitant]
     Active Substance: CETIRIZINE HYDROCHLORIDE
  5. ALBUTEROL SULFATE [Concomitant]
     Active Substance: ALBUTEROL SULFATE
  6. CIPROFLOXACINA + DEXAMETASONA [Concomitant]
  7. TOBRAMYCIN [Concomitant]
     Active Substance: TOBRAMYCIN
  8. AZITHROMYCIN [Concomitant]
     Active Substance: AZITHROMYCIN
  9. FLUTICASONE [Concomitant]
     Active Substance: FLUTICASONE
  10. FAMOTIDINE [Concomitant]
     Active Substance: FAMOTIDINE
  11. KITABIS PAK [Concomitant]
     Active Substance: TOBRAMYCIN
  12. ALBUTEROL [Concomitant]
     Active Substance: ALBUTEROL
  13. PULMOZYME [Concomitant]
     Active Substance: DORNASE ALFA
  14. SYMBICORT [Concomitant]
     Active Substance: BUDESONIDE\FORMOTEROL FUMARATE DIHYDRATE
  15. PROAIR HFA [Concomitant]
     Active Substance: ALBUTEROL SULFATE
  16. MOMETASONE [Concomitant]
     Active Substance: MOMETASONE

REACTIONS (2)
  - Ear infection [Unknown]
  - Product use in unapproved indication [Unknown]
